FAERS Safety Report 4803864-2 (Version None)
Quarter: 2005Q4

REPORT INFORMATION
  Report Type: 
  Country: None (occurrence: None)
  Receive Date: 20051014
  Receipt Date: 20050930
  Transmission Date: 20060501
  Serious: Yes (Hospitalization)
  Sender: FDA-Public Use
  Company Number: UA-2005-020485

PATIENT
  Age: 50 Year
  Sex: Female

DRUGS (1)
  1. MIRENA [Suspect]
     Indication: GENITAL HAEMORRHAGE
     Dosage: 20 UG/DAY, CONT, INTRA-UTERINE
     Route: 015
     Dates: start: 20050301, end: 20050909

REACTIONS (5)
  - IUCD COMPLICATION [None]
  - METRORRHAGIA [None]
  - OVARIAN ADENOMA [None]
  - UTERINE LEIOMYOMA [None]
  - UTERINE PERFORATION [None]
